FAERS Safety Report 19735050 (Version 1)
Quarter: 2021Q3

REPORT INFORMATION
  Report Type: Spontaneous
  Country: US (occurrence: US)
  Receive Date: 20210823
  Receipt Date: 20210823
  Transmission Date: 20211014
  Serious: Yes (Other)
  Sender: FDA-Public Use
  Company Number: US-GYP-000368

PATIENT
  Age: 69 Year

DRUGS (1)
  1. PREDNISONE. [Suspect]
     Active Substance: PREDNISONE
     Indication: ACUTE RESPIRATORY FAILURE
     Route: 065

REACTIONS (2)
  - Product use in unapproved indication [Unknown]
  - Pneumocystis jirovecii pneumonia [Unknown]
